FAERS Safety Report 10984167 (Version 1)
Quarter: 2015Q2

REPORT INFORMATION
  Report Type: Report from Study
  Country: AU (occurrence: AU)
  Receive Date: 20150403
  Receipt Date: 20150403
  Transmission Date: 20150821
  Serious: Yes (Other)
  Sender: FDA-Public Use
  Company Number: AU-SA-2014SA112042

PATIENT
  Age: 70 Year
  Sex: Female

DRUGS (9)
  1. VITAMIN B [Concomitant]
     Active Substance: VITAMIN B
  2. FISH OIL [Concomitant]
     Active Substance: FISH OIL
  3. MICROGENICS IMMUNE SUPPORT FORUMULA [Concomitant]
  4. NEXIUM [Concomitant]
     Active Substance: ESOMEPRAZOLE MAGNESIUM
  5. MAGNESIUM [Concomitant]
     Active Substance: MAGNESIUM
  6. CALCIUM [Concomitant]
     Active Substance: CALCIUM
  7. AUBAGIO [Suspect]
     Active Substance: TERIFLUNOMIDE
     Route: 048
     Dates: start: 20140815
  8. THYROXINE SODIUM [Concomitant]
     Active Substance: LEVOTHYROXINE SODIUM
  9. VITAMIN D [Concomitant]
     Active Substance: CHOLECALCIFEROL

REACTIONS (15)
  - Rash [Unknown]
  - Hypertension [Recovered/Resolved]
  - Alopecia [Recovered/Resolved]
  - Headache [Recovered/Resolved]
  - Hepatitis viral [Not Recovered/Not Resolved]
  - Bone density decreased [Not Recovered/Not Resolved]
  - Feeling abnormal [Recovered/Resolved]
  - Muscle spasms [Recovered/Resolved]
  - Fatigue [Recovered/Resolved]
  - Sinusitis [Recovered/Resolved]
  - Diarrhoea [Recovering/Resolving]
  - Liver function test abnormal [Not Recovered/Not Resolved]
  - Muscle tightness [Recovered/Resolved]
  - Nasopharyngitis [Recovered/Resolved]
  - Rash [Recovering/Resolving]
